FAERS Safety Report 6091043-3 (Version None)
Quarter: 2009Q1

REPORT INFORMATION
  Report Type: 
  Country: None (occurrence: None)
  Receive Date: 20090225
  Receipt Date: 20090217
  Transmission Date: 20090719
  Serious: Yes (Other)
  Sender: FDA-Public Use
  Company Number: IT-BAXTER-2009BH002409

PATIENT
  Sex: Male

DRUGS (1)
  1. SUPRANE [Suspect]
     Indication: SEDATION
     Route: 055

REACTIONS (1)
  - CARDIAC ENZYMES INCREASED [None]
